FAERS Safety Report 20602545 (Version 2)
Quarter: 2022Q1

REPORT INFORMATION
  Report Type: Spontaneous
  Country: JP (occurrence: JP)
  Receive Date: 20220316
  Receipt Date: 20220323
  Transmission Date: 20220423
  Serious: Yes (Life-Threatening, Hospitalization, Other)
  Sender: FDA-Public Use
  Company Number: JP-MLMSERVICE-20220303-3409235-1

PATIENT
  Age: 11 Year
  Sex: Female

DRUGS (1)
  1. DOXORUBICIN HYDROCHLORIDE [Suspect]
     Active Substance: DOXORUBICIN HYDROCHLORIDE
     Indication: Osteosarcoma
     Dosage: 450 MG/M2

REACTIONS (4)
  - Pulmonary hypertension [Recovered/Resolved]
  - Right ventricular failure [Recovered/Resolved]
  - Left ventricular failure [Recovered/Resolved]
  - Cardiomyopathy [Recovered/Resolved]
